FAERS Safety Report 23451700 (Version 2)
Quarter: 2024Q2

REPORT INFORMATION
  Report Type: Spontaneous
  Country: US (occurrence: US)
  Receive Date: 20240129
  Receipt Date: 20240414
  Transmission Date: 20240716
  Serious: No
  Sender: FDA-Public Use
  Company Number: US-SA-SAC20240119001288

PATIENT
  Age: 58 Year
  Sex: Female

DRUGS (1)
  1. DUPIXENT [Suspect]
     Active Substance: DUPILUMAB
     Indication: Nasal polyps
     Dosage: 300 MG, QOW
     Route: 058

REACTIONS (6)
  - Nasal dryness [Recovered/Resolved]
  - Epistaxis [Unknown]
  - Anosmia [Not Recovered/Not Resolved]
  - Therapeutic response decreased [Unknown]
  - Arthralgia [Unknown]
  - Injection site pain [Unknown]
